FAERS Safety Report 6349889-X (Version None)
Quarter: 2009Q3

REPORT INFORMATION
  Report Type: 
  Country: None (occurrence: None)
  Receive Date: 20090911
  Receipt Date: 20090812
  Transmission Date: 20100115
  Serious: Yes (Disabling)
  Sender: FDA-Public Use
  Company Number: CN-GENENTECH-281197

PATIENT
  Sex: Female

DRUGS (2)
  1. BEVACIZUMAB [Suspect]
     Indication: BREAST CANCER METASTATIC
     Dosage: 800 MG, Q3W
     Route: 042
     Dates: start: 20080826, end: 20090313
  2. DOCETAXEL [Suspect]
     Indication: BREAST CANCER METASTATIC
     Dosage: 116 MG, Q3W
     Route: 042
     Dates: start: 20080826, end: 20090313

REACTIONS (3)
  - FACIAL PALSY [None]
  - KERATITIS [None]
  - OPTIC NEURITIS [None]
